FAERS Safety Report 5124252-8 (Version None)
Quarter: 2006Q4

REPORT INFORMATION
  Report Type: 
  Country: None (occurrence: None)
  Receive Date: 20061010
  Receipt Date: 20050128
  Transmission Date: 20070319
  Serious: Yes (Death)
  Sender: FDA-Public Use
  Company Number: IT-ABBOTT-05P-083-0288808-01

PATIENT
  Sex: Male

DRUGS (6)
  1. RITONAVIR SOFT GELATIN CAPSULES [Suspect]
     Indication: HIV INFECTION
     Route: 048
     Dates: start: 20030724, end: 20040217
  2. TIPRANAVIR [Concomitant]
     Indication: HIV INFECTION
     Route: 048
     Dates: start: 20030724, end: 20040217
  3. LAMIVUDINE [Concomitant]
     Indication: ANTIVIRAL PROPHYLAXIS
  4. DIDANOSINE [Concomitant]
     Indication: ANTIVIRAL PROPHYLAXIS
  5. STAVUDINE [Concomitant]
     Indication: ANTIVIRAL PROPHYLAXIS
  6. TENOFOVIR [Concomitant]
     Indication: ANTIVIRAL PROPHYLAXIS

REACTIONS (1)
  - DEATH [None]
